FAERS Safety Report 13109665 (Version 1)
Quarter: 2017Q1

REPORT INFORMATION
  Report Type: Spontaneous
  Country: US (occurrence: US)
  Receive Date: 20170112
  Receipt Date: 20170112
  Transmission Date: 20170428
  Serious: No
  Sender: FDA-Public Use
  Company Number: US-ROCHE-1005917

PATIENT
  Age: 42 Year

DRUGS (1)
  1. ACTIVASE [Suspect]
     Active Substance: ALTEPLASE
     Indication: DEEP VEIN THROMBOSIS
     Dosage: 9 MG AT A RATE OF 1.5 MG/HR
     Route: 065

REACTIONS (1)
  - Blood fibrinogen decreased [Unknown]
